FAERS Safety Report 11925718 (Version 3)
Quarter: 2016Q1

REPORT INFORMATION
  Report Type: Spontaneous
  Country: US (occurrence: US)
  Receive Date: 20160118
  Receipt Date: 20160216
  Transmission Date: 20160526
  Serious: Yes (Hospitalization, Other)
  Sender: FDA-Public Use
  Company Number: US-009507513-1601USA005242

PATIENT
  Age: 74 Year
  Sex: Male
  Weight: 67 kg

DRUGS (12)
  1. FLOMAX [Concomitant]
     Active Substance: TAMSULOSIN HYDROCHLORIDE
     Dosage: 0.4 MG, QD
     Route: 048
  2. KEYTRUDA [Suspect]
     Active Substance: PEMBROLIZUMAB
     Indication: METASTATIC MALIGNANT MELANOMA
     Dosage: 1325 MG 2 MG/KG, Q3W
     Route: 042
     Dates: start: 20151029, end: 20151230
  3. AMLACTIN [Concomitant]
     Active Substance: AMMONIUM LACTATE
     Route: 061
  4. PROSCAR [Concomitant]
     Active Substance: FINASTERIDE
     Dosage: 5 MG, QD
     Route: 048
  5. MAG OX [Concomitant]
     Active Substance: MAGNESIUM OXIDE
     Dosage: 800 MG, BID
     Route: 048
  6. ZOCOR [Concomitant]
     Active Substance: SIMVASTATIN
     Dosage: 10 MG, HS
     Route: 048
  7. ASPIRIN. [Concomitant]
     Active Substance: ASPIRIN
     Dosage: 81 MG, QD
     Route: 048
  8. CARDIZEM CD [Concomitant]
     Active Substance: DILTIAZEM HYDROCHLORIDE
     Dosage: 240 MG, QD
     Route: 048
  9. SYNTHROID [Concomitant]
     Active Substance: LEVOTHYROXINE SODIUM
     Dosage: 25 MICROGRAM, QD
     Route: 048
  10. TOPROL XL [Concomitant]
     Active Substance: METOPROLOL SUCCINATE
     Dosage: 50 MG, QD
     Route: 048
  11. DESYREL [Concomitant]
     Active Substance: TRAZODONE HYDROCHLORIDE
     Dosage: 50 MG, HS
     Route: 048
  12. COUMADIN [Concomitant]
     Active Substance: WARFARIN SODIUM
     Dosage: 2 MG, UNK
     Route: 048

REACTIONS (9)
  - Type 1 diabetes mellitus [Recovering/Resolving]
  - Hepatitis [Recovered/Resolved]
  - Diplopia [Recovered/Resolved]
  - Hypoglycaemia [Unknown]
  - Contusion [Unknown]
  - Dermatitis [Recovering/Resolving]
  - Pancreatic islets hyperplasia [Unknown]
  - Fatigue [Recovering/Resolving]
  - Onychomycosis [Unknown]

NARRATIVE: CASE EVENT DATE: 201511
